FAERS Safety Report 23718838 (Version 2)
Quarter: 2024Q2

REPORT INFORMATION
  Report Type: Report from Study
  Country: US (occurrence: US)
  Receive Date: 20240408
  Receipt Date: 20240415
  Transmission Date: 20240716
  Serious: No
  Sender: FDA-Public Use
  Company Number: US-BRISTOL-MYERS SQUIBB COMPANY-2024-054835

PATIENT
  Age: 58 Year
  Sex: Male

DRUGS (2)
  1. OPDIVO [Suspect]
     Active Substance: NIVOLUMAB
     Indication: Metastatic malignant melanoma
     Dates: end: 20240319
  2. YERVOY [Suspect]
     Active Substance: IPILIMUMAB
     Indication: Metastatic malignant melanoma
     Dates: end: 20240319

REACTIONS (9)
  - Stomatitis [Recovering/Resolving]
  - Fatigue [Unknown]
  - Headache [Unknown]
  - Oral discomfort [Recovering/Resolving]
  - Oropharyngeal pain [Recovering/Resolving]
  - Visual impairment [Unknown]
  - Somnolence [Unknown]
  - Arthropathy [Unknown]
  - Cheilitis [Recovering/Resolving]
